FAERS Safety Report 6072793-1 (Version None)
Quarter: 2009Q1

REPORT INFORMATION
  Report Type: 
  Country: None (occurrence: None)
  Receive Date: 20090205
  Receipt Date: 20090123
  Transmission Date: 20090719
  Serious: Yes (Disabling)
  Sender: FDA-Public Use
  Company Number: 0901-014

PATIENT
  Age: 42 Year
  Sex: Female
  Weight: 77.1115 kg

DRUGS (2)
  1. ARCALYST [Suspect]
     Indication: FAMILIAL COLD AUTOINFLAMMATORY SYNDROME
     Dosage: 160 MG, Q WEEK TO Q 2 WEEKS, SUBCUTANEOUS
     Route: 058
     Dates: start: 20080101
  2. SYNTHROID [Concomitant]

REACTIONS (1)
  - IRITIS [None]
